FAERS Safety Report 22142006 (Version 1)
Quarter: 2023Q1

REPORT INFORMATION
  Report Type: Report from Study
  Country: CH (occurrence: CH)
  Receive Date: 20230327
  Receipt Date: 20230327
  Transmission Date: 20230417
  Serious: Yes (Other)
  Sender: FDA-Public Use
  Company Number: CH-ELI_LILLY_AND_COMPANY-CH202303010297

PATIENT
  Age: 46 Year
  Sex: Female

DRUGS (1)
  1. EMGALITY [Suspect]
     Active Substance: GALCANEZUMAB-GNLM
     Indication: Product used for unknown indication
     Dosage: UNK, UNKNOWN
     Route: 065

REACTIONS (7)
  - Small intestinal obstruction [Unknown]
  - Menstruation irregular [Unknown]
  - Fixed bowel loop [Unknown]
  - Abdominal hernia [Unknown]
  - Feeding disorder [Unknown]
  - Abdominal tenderness [Unknown]
  - Weight decreased [Unknown]
